FAERS Safety Report 16203900 (Version 1)
Quarter: 2019Q2

REPORT INFORMATION
  Report Type: Spontaneous
  Country: GB (occurrence: GB)
  Receive Date: 20190416
  Receipt Date: 20190416
  Transmission Date: 20190711
  Serious: Yes (Other)
  Sender: FDA-Public Use
  Company Number: GB-GUERBET-GB-20190066

PATIENT
  Age: 91 Year
  Sex: Female
  Weight: 69.85 kg

DRUGS (1)
  1. OPTIRAY [Suspect]
     Active Substance: IOVERSOL
     Indication: COMPUTERISED TOMOGRAM
     Route: 042
     Dates: start: 20190313, end: 20190313

REACTIONS (3)
  - Chest discomfort [Unknown]
  - Throat irritation [Unknown]
  - Sneezing [Unknown]

NARRATIVE: CASE EVENT DATE: 20190313
